FAERS Safety Report 9190190 (Version 1)
Quarter: 2013Q1

REPORT INFORMATION
  Report Type: Spontaneous
  Country: US (occurrence: US)
  Receive Date: 20130326
  Receipt Date: 20130326
  Transmission Date: 20140127
  Serious: Yes (Other)
  Sender: FDA-Public Use
  Company Number: PHEH2013US006636

PATIENT
  Sex: Female

DRUGS (2)
  1. DIOVAN HCT [Suspect]
     Indication: HYPERTENSION
     Dosage: 1 DF, (180/12.5 MG) QD
     Route: 048
  2. MAXAIR [Concomitant]
     Indication: ASTHMA
     Dosage: UNK UKN, UNK

REACTIONS (3)
  - Intracranial aneurysm [Unknown]
  - Weight decreased [Unknown]
  - Cardiac murmur [Unknown]
